FAERS Safety Report 23685958 (Version 2)
Quarter: 2024Q2

REPORT INFORMATION
  Report Type: Spontaneous
  Country: US (occurrence: US)
  Receive Date: 20240329
  Receipt Date: 20240424
  Transmission Date: 20240716
  Serious: No
  Sender: FDA-Public Use
  Company Number: US-BAUSCH-BL-2024-004629

PATIENT
  Age: 86 Year
  Sex: Male

DRUGS (5)
  1. PIMECROLIMUS [Suspect]
     Active Substance: PIMECROLIMUS
     Indication: Rash
     Route: 061
     Dates: start: 202307
  2. CLOTRIMAZOLE [Concomitant]
     Active Substance: CLOTRIMAZOLE
     Indication: Rash
     Route: 065
  3. KETOCONAZOLE [Concomitant]
     Active Substance: KETOCONAZOLE
     Indication: Rash
     Route: 065
  4. CICLOPIROX OLAMINE [Concomitant]
     Active Substance: CICLOPIROX OLAMINE
     Indication: Rash
     Route: 065
  5. ZINC OXIDE [Concomitant]
     Active Substance: ZINC OXIDE
     Indication: Rash
     Route: 065

REACTIONS (5)
  - Memory impairment [Unknown]
  - Pain in extremity [Unknown]
  - Rash [Unknown]
  - Oedema peripheral [Unknown]
  - Therapeutic product effect incomplete [Unknown]

NARRATIVE: CASE EVENT DATE: 20231201
